FAERS Safety Report 8467452-1 (Version None)
Quarter: 2012Q2

REPORT INFORMATION
  Report Type: 
  Country: None (occurrence: None)
  Receive Date: 20120626
  Receipt Date: 20120406
  Transmission Date: 20120825
  Serious: No
  Sender: FDA-Public Use
  Company Number: US-ASTRAZENECA-2012SE22988

PATIENT
  Age: 69 Year
  Sex: Female

DRUGS (2)
  1. MULTI-VITAMINS [Concomitant]
  2. CAPRELSA [Suspect]
     Route: 048
     Dates: start: 20120208

REACTIONS (1)
  - SUNBURN [None]
